FAERS Safety Report 24075493 (Version 5)
Quarter: 2025Q3

REPORT INFORMATION
  Report Type: Spontaneous
  Country: EU (occurrence: EU)
  Receive Date: 20240710
  Receipt Date: 20250708
  Transmission Date: 20251021
  Serious: Yes (Other)
  Sender: INCYTE
  Company Number: None

PATIENT
  Age: 52 Year

DRUGS (22)
  1. RUXOLITINIB [Suspect]
     Active Substance: RUXOLITINIB
     Indication: T-cell prolymphocytic leukaemia
     Route: 065
  2. TACROLIMUS [Suspect]
     Active Substance: TACROLIMUS
     Indication: Prophylaxis against graft versus host disease
     Route: 065
  3. TACROLIMUS [Suspect]
     Active Substance: TACROLIMUS
     Route: 065
  4. FLUDARABINE PHOSPHATE [Suspect]
     Active Substance: FLUDARABINE PHOSPHATE
     Indication: T-cell prolymphocytic leukaemia
     Route: 065
  5. FLUDARABINE PHOSPHATE [Suspect]
     Active Substance: FLUDARABINE PHOSPHATE
     Indication: Bone marrow conditioning regimen
  6. FLUDARABINE PHOSPHATE [Suspect]
     Active Substance: FLUDARABINE PHOSPHATE
     Indication: T-cell prolymphocytic leukaemia
  7. FLUDARABINE PHOSPHATE [Suspect]
     Active Substance: FLUDARABINE PHOSPHATE
     Indication: Allogenic stem cell transplantation
  8. THIOGUANINE [Suspect]
     Active Substance: THIOGUANINE
     Indication: T-cell prolymphocytic leukaemia
     Route: 065
  9. THIOGUANINE [Suspect]
     Active Substance: THIOGUANINE
     Indication: Bone marrow conditioning regimen
  10. THIOGUANINE [Suspect]
     Active Substance: THIOGUANINE
     Indication: T-cell prolymphocytic leukaemia
  11. CYCLOPHOSPHAMIDE [Suspect]
     Active Substance: CYCLOPHOSPHAMIDE
     Indication: Prophylaxis against graft versus host disease
     Route: 065
  12. CYCLOPHOSPHAMIDE [Suspect]
     Active Substance: CYCLOPHOSPHAMIDE
     Route: 065
  13. VENETOCLAX [Suspect]
     Active Substance: VENETOCLAX
     Indication: T-cell prolymphocytic leukaemia
     Route: 065
  14. MELPHALAN [Suspect]
     Active Substance: MELPHALAN
     Indication: T-cell prolymphocytic leukaemia
     Route: 065
  15. MELPHALAN [Suspect]
     Active Substance: MELPHALAN
     Indication: Bone marrow conditioning regimen
  16. MYCOPHENOLATE MOFETIL [Suspect]
     Active Substance: MYCOPHENOLATE MOFETIL
     Indication: Prophylaxis against graft versus host disease
     Route: 065
  17. MYCOPHENOLATE MOFETIL [Suspect]
     Active Substance: MYCOPHENOLATE MOFETIL
     Route: 065
  18. CLADRIBINE [Suspect]
     Active Substance: CLADRIBINE
     Indication: T-cell prolymphocytic leukaemia
     Route: 065
  19. ALKERAN [Suspect]
     Active Substance: MELPHALAN
     Indication: T-cell prolymphocytic leukaemia
     Route: 065
  20. ALKERAN [Suspect]
     Active Substance: MELPHALAN
     Indication: Bone marrow conditioning regimen
  21. CELLCEPT [Suspect]
     Active Substance: MYCOPHENOLATE MOFETIL
     Indication: Prophylaxis against graft versus host disease
     Route: 065
  22. THIOTEPA [Suspect]
     Active Substance: THIOTEPA
     Indication: Allogenic stem cell transplantation
     Route: 065

REACTIONS (6)
  - Bacteraemia [Recovered/Resolved]
  - Cytopenia [Unknown]
  - Acute graft versus host disease in skin [Recovered/Resolved]
  - Systemic mycosis [Recovered/Resolved]
  - Off label use [Unknown]
  - Off label use [Unknown]
